FAERS Safety Report 8889942 (Version 1)
Quarter: 2012Q4

REPORT INFORMATION
  Report Type: 
  Country: US (occurrence: US)
  Receive Date: 20121107
  Receipt Date: 20121107
  Transmission Date: 20130627
  Serious: Yes (Other)
  Sender: FDA-Public Use
  Company Number: PHHY2012US100475

PATIENT
  Age: 52 Year
  Sex: Female
  Weight: 71.66 kg

DRUGS (16)
  1. GILENYA [Suspect]
     Indication: MULTIPLE SCLEROSIS
     Dosage: 0.5 mg, QD
     Route: 048
     Dates: start: 20110609
  2. GLUCOPHAGE [Concomitant]
     Dosage: 500 mg, UNK
  3. SYNTHROID [Concomitant]
     Dosage: 25 mg, UNK
  4. LOTENSIN [Concomitant]
     Dosage: 5 mg, QD
  5. ULTRACET [Concomitant]
     Dosage: 37.5-325 UKN, PRN
  6. ESTRADIOL [Concomitant]
  7. ZOCOR [Concomitant]
     Dosage: 20 mg, UNK
  8. LYRICA [Concomitant]
     Dosage: 100 mg, TID
  9. ALPHA LIPOIC ACID [Concomitant]
     Dosage: 600 mg, TID
  10. METANX [Concomitant]
  11. CYMBALTA [Concomitant]
     Dosage: 30 mg, QHS
  12. COREG [Concomitant]
     Dosage: 20 mg, BID
  13. ROBAXIN [Concomitant]
  14. BENAZEPLUS [Concomitant]
     Dosage: 5-6.25 UKN, UNK
  15. NEXIUM//ESOMEPRAZOLE MAGNESIUM [Concomitant]
     Dosage: 20 mg, UNK
  16. CALCIUM [Concomitant]
     Dosage: 500 DF, UNK

REACTIONS (2)
  - Haemangioma of liver [Unknown]
  - Lymphadenopathy [Unknown]
